FAERS Safety Report 18632975 (Version 1)
Quarter: 2020Q4

REPORT INFORMATION
  Report Type: Spontaneous
  Country: US (occurrence: US)
  Receive Date: 20201217
  Receipt Date: 20201217
  Transmission Date: 20210114
  Serious: Yes (Hospitalization)
  Sender: FDA-Public Use
  Company Number: None

PATIENT
  Sex: Female

DRUGS (4)
  1. MEKINIST [Suspect]
     Active Substance: TRAMETINIB DIMETHYL SULFOXIDE
     Indication: BREAST CANCER
     Route: 048
     Dates: start: 20200212
  2. TYLENOL [Concomitant]
     Active Substance: ACETAMINOPHEN
  3. TAFINLAR [Concomitant]
     Active Substance: DABRAFENIB MESYLATE
     Dates: start: 20191220
  4. BENADRYL 25MG [Concomitant]

REACTIONS (3)
  - Ulcer [None]
  - Immune system disorder [None]
  - Anaemia [None]
